FAERS Safety Report 5225199-9 (Version None)
Quarter: 2007Q1

REPORT INFORMATION
  Report Type: 
  Country: None (occurrence: None)
  Receive Date: 20070131
  Receipt Date: 20070122
  Transmission Date: 20070707
  Serious: Yes (Other)
  Sender: FDA-Public Use
  Company Number: US-ROCHE-447563

PATIENT
  Sex: Male

DRUGS (1)
  1. ACCUTANE [Suspect]
     Indication: ACNE
     Dates: start: 19840115, end: 19840615

REACTIONS (2)
  - DRUG EXPOSURE DURING PREGNANCY [None]
  - OBSESSIVE-COMPULSIVE DISORDER [None]
